FAERS Safety Report 16082242 (Version 3)
Quarter: 2019Q3

REPORT INFORMATION
  Report Type: Report from Study
  Country: None (occurrence: AR)
  Receive Date: 20190317
  Receipt Date: 20190824
  Transmission Date: 20191004
  Serious: Yes (Life-Threatening, Hospitalization, Other)
  Sender: FDA-Public Use
  Company Number: AR-ABBVIE-19K-007-2624909-00

PATIENT
  Age: 61 Year
  Sex: Female

DRUGS (6)
  1. VAPRESAN [Concomitant]
     Indication: PRODUCT USED FOR UNKNOWN INDICATION
  2. PLENICA [Concomitant]
     Active Substance: PREGABALIN
     Indication: PRODUCT USED FOR UNKNOWN INDICATION
  3. HUMIRA [Suspect]
     Active Substance: ADALIMUMAB
     Indication: HIDRADENITIS
     Route: 058
     Dates: start: 20170801
  4. METFORMIN [Concomitant]
     Active Substance: METFORMIN HYDROCHLORIDE
     Indication: PRODUCT USED FOR UNKNOWN INDICATION
  5. MEPLAR [Concomitant]
     Indication: PRODUCT USED FOR UNKNOWN INDICATION
  6. CLONAZEPAM. [Concomitant]
     Active Substance: CLONAZEPAM
     Indication: PRODUCT USED FOR UNKNOWN INDICATION

REACTIONS (7)
  - Hidradenitis [Unknown]
  - Intra-abdominal haematoma [Unknown]
  - Diabetes mellitus [Unknown]
  - Cerebrovascular accident [Recovering/Resolving]
  - Blindness unilateral [Unknown]
  - Neuropathy peripheral [Unknown]
  - Pain in extremity [Unknown]

NARRATIVE: CASE EVENT DATE: 20181031
